FAERS Safety Report 5888659-3 (Version None)
Quarter: 2008Q3

REPORT INFORMATION
  Report Type: 
  Country: None (occurrence: None)
  Receive Date: 20080918
  Receipt Date: 20080913
  Transmission Date: 20090109
  Serious: No
  Sender: FDA-Public Use
  Company Number: CA-BAXTER-2008BH009771

PATIENT
  Age: 21 Year
  Sex: Male

DRUGS (2)
  1. HEPARIN SODIUM INJECTION [Suspect]
     Indication: PROTEIN C DEFICIENCY
     Dosage: DOSE UNIT:UNKNOWN
     Route: 065
  2. WARFARIN SODIUM [Concomitant]
     Indication: DEEP VEIN THROMBOSIS
     Dosage: DOSE UNIT:UNKNOWN
     Route: 065

REACTIONS (1)
  - ADVERSE EVENT [None]
